FAERS Safety Report 24159964 (Version 1)
Quarter: 2024Q3

REPORT INFORMATION
  Report Type: Spontaneous
  Country: US (occurrence: US)
  Receive Date: 20240801
  Receipt Date: 20240801
  Transmission Date: 20241016
  Serious: No
  Sender: IRONSHORE PHARMA
  Company Number: US-Ironshore Pharmaceuticals Inc.-IRON20240805

PATIENT
  Sex: Female

DRUGS (1)
  1. JORNAY PM EXTENDED-RELEASE [Suspect]
     Active Substance: METHYLPHENIDATE HYDROCHLORIDE
     Indication: Attention deficit hyperactivity disorder
     Dosage: SHE STARTED ON A HIGHER DOSE, EITHER 60 OR 80 MG
     Route: 048

REACTIONS (4)
  - Excessive eye blinking [Unknown]
  - Dyskinesia [Unknown]
  - Restlessness [Unknown]
  - Drug dose titration not performed [None]
